FAERS Safety Report 25105916 (Version 1)
Quarter: 2025Q1

REPORT INFORMATION
  Report Type: Other
  Country: FR (occurrence: FR)
  Receive Date: 20250321
  Receipt Date: 20250321
  Transmission Date: 20250408
  Serious: Yes (Life-Threatening, Other)
  Sender: DENTSPLY
  Company Number: FR-DENTSPLY-2025SCDP000066

PATIENT
  Age: 54 Year
  Sex: Male
  Weight: 84.5 kg

DRUGS (1)
  1. MEPIVACAINE [Suspect]
     Active Substance: MEPIVACAINE HYDROCHLORIDE
     Indication: Nerve block
     Route: 053
     Dates: start: 20250116, end: 20250116

REACTIONS (2)
  - Incorrect dose administered [Recovered/Resolved]
  - Local anaesthetic systemic toxicity [Recovered/Resolved]

NARRATIVE: CASE EVENT DATE: 20250116
